FAERS Safety Report 11254159 (Version 1)
Quarter: 2015Q2

REPORT INFORMATION
  Report Type: Spontaneous
  Country: FR (occurrence: FR)
  Receive Date: 20150617
  Receipt Date: 20150617
  Transmission Date: 20150821
  Serious: Yes (Life-Threatening, Hospitalization)
  Sender: FDA-Public Use
  Company Number: FR-CLINIGEN GROUP PLC/ CLINIGEN HEALTHCARE LTD-FR-CLGN-15-00017

PATIENT
  Age: 46 Year
  Sex: Female
  Weight: 54 kg

DRUGS (8)
  1. FOSCAVIR [Suspect]
     Active Substance: FOSCARNET SODIUM
     Route: 041
     Dates: start: 20150203, end: 20150203
  2. POTASSIUM SUPPLEMENT [Concomitant]
     Indication: PRODUCT USED FOR UNKNOWN INDICATION
     Dates: start: 20150204
  3. FOSCAVIR [Suspect]
     Active Substance: FOSCARNET SODIUM
     Route: 041
     Dates: start: 20150129
  4. LUTERAN [Concomitant]
     Active Substance: CHLORMADINONE ACETATE
     Indication: PRODUCT USED FOR UNKNOWN INDICATION
  5. CORTANCYL [Concomitant]
     Active Substance: PREDNISONE
     Indication: PRODUCT USED FOR UNKNOWN INDICATION
  6. URIDOZ [Concomitant]
     Active Substance: FOSFOMYCIN TROMETHAMINE
     Indication: PRODUCT USED FOR UNKNOWN INDICATION
  7. FOSCAVIR [Suspect]
     Active Substance: FOSCARNET SODIUM
     Indication: CYTOMEGALOVIRUS INFECTION
     Route: 041
     Dates: start: 201501, end: 201501
  8. NEORAL [Concomitant]
     Active Substance: CYCLOSPORINE
     Indication: PRODUCT USED FOR UNKNOWN INDICATION

REACTIONS (8)
  - Renal tubular disorder [Recovered/Resolved]
  - Acute kidney injury [Recovering/Resolving]
  - Crystal nephropathy [Recovered/Resolved]
  - Hypocalcaemia [Recovered/Resolved]
  - Product use issue [Recovered/Resolved]
  - Nephrotic syndrome [Recovered/Resolved]
  - Hypokalaemia [Recovered/Resolved]
  - Accidental overdose [Recovered/Resolved]

NARRATIVE: CASE EVENT DATE: 201501
